FAERS Safety Report 7711295 (Version 7)
Quarter: 2012Q4

REPORT INFORMATION
  Report Type: 
  Country: US (occurrence: US)
  Receive Date: 20101215
  Receipt Date: 20121129
  Transmission Date: 20130627
  Serious: No
  Sender: FDA-Public Use
  Company Number: US-BIOGENIDEC-2010BI042972

PATIENT
  Age: 51 None
  Sex: Female

DRUGS (7)
  1. TYSABRI [Suspect]
     Indication: MULTIPLE SCLEROSIS
     Route: 042
     Dates: start: 20101025, end: 20110221
  2. TYSABRI [Suspect]
     Indication: MULTIPLE SCLEROSIS
     Route: 042
     Dates: start: 20120924
  3. AVONEX [Concomitant]
     Indication: MULTIPLE SCLEROSIS
     Route: 030
     Dates: start: 20091008
  4. AVONEX [Concomitant]
     Indication: MULTIPLE SCLEROSIS
     Route: 030
     Dates: start: 20110804
  5. KLONOPIN [Concomitant]
     Indication: HEAD TITUBATION
  6. MECLIZINE [Concomitant]
     Indication: MULTIPLE SCLEROSIS
  7. XANAFLEX [Concomitant]
     Indication: MUSCLE SPASMS

REACTIONS (15)
  - Hypotension [Recovered/Resolved]
  - Headache [Recovered/Resolved]
  - Cognitive disorder [Unknown]
  - Pain [Not Recovered/Not Resolved]
  - Vision blurred [Not Recovered/Not Resolved]
  - Scotoma [Not Recovered/Not Resolved]
  - Mood altered [Unknown]
  - Loss of consciousness [Recovered/Resolved]
  - Hypoaesthesia [Recovered/Resolved]
  - Dizziness [Not Recovered/Not Resolved]
  - Pruritus [Not Recovered/Not Resolved]
  - Multiple sclerosis [Unknown]
  - Balance disorder [Unknown]
  - Gait disturbance [Unknown]
  - Visual impairment [Unknown]
